FAERS Safety Report 26215291 (Version 1)
Quarter: 2025Q4

REPORT INFORMATION
  Report Type: Report from Study
  Country: US (occurrence: US)
  Receive Date: 20251230
  Receipt Date: 20251230
  Transmission Date: 20260117
  Serious: Yes (Hospitalization)
  Sender: ABBVIE
  Company Number: US-ABBVIE-6609552

PATIENT
  Age: 80 Year
  Sex: Female

DRUGS (2)
  1. IMBRUVICA [Suspect]
     Active Substance: IBRUTINIB
     Indication: Waldenstrom^s macroglobulinaemia
     Route: 048
     Dates: start: 20230108, end: 20251227
  2. IMBRUVICA [Suspect]
     Active Substance: IBRUTINIB
     Indication: Waldenstrom^s macroglobulinaemia
     Route: 048
     Dates: start: 202512

REACTIONS (9)
  - Heart rate decreased [Recovering/Resolving]
  - Pallor [Unknown]
  - Pain in extremity [Unknown]
  - Peripheral coldness [Unknown]
  - Poor peripheral circulation [Unknown]
  - Feeding disorder [Unknown]
  - Hypoaesthesia [Unknown]
  - Emotional disorder [Unknown]
  - Pain [Unknown]

NARRATIVE: CASE EVENT DATE: 20251201
